FAERS Safety Report 12583851 (Version 1)
Quarter: 2016Q3

REPORT INFORMATION
  Report Type: Spontaneous
  Country: US (occurrence: US)
  Receive Date: 20160722
  Receipt Date: 20160722
  Transmission Date: 20161109
  Serious: Yes (Death, Disabling)
  Sender: FDA-Public Use
  Company Number: US-JNJFOC-20160711893

PATIENT
  Sex: Female

DRUGS (1)
  1. LEVAQUIN [Suspect]
     Active Substance: LEVOFLOXACIN
     Indication: INFECTION
     Route: 065

REACTIONS (2)
  - Cerebrovascular accident [Unknown]
  - Myocardial infarction [Fatal]
